FAERS Safety Report 9708775 (Version 2)
Quarter: 2013Q4

REPORT INFORMATION
  Report Type: Other
  Country: TR (occurrence: TR)
  Receive Date: 20131125
  Receipt Date: 20131209
  Transmission Date: 20140711
  Serious: Yes (Hospitalization, Other)
  Sender: FDA-Public Use
  Company Number: TR-BRISTOL-MYERS SQUIBB COMPANY-19829878

PATIENT
  Age: 59 Year
  Sex: Female
  Weight: 86 kg

DRUGS (6)
  1. METFORMIN HCL [Suspect]
     Indication: TYPE 2 DIABETES MELLITUS
  2. EXENATIDE [Suspect]
     Indication: WEIGHT DECREASED
     Dosage: 20 MCG (10 MCG,2 IN 1 D)
     Route: 058
  3. SITAGLIPTIN PHOSPHATE [Suspect]
     Indication: TYPE 2 DIABETES MELLITUS
  4. NATEGLINIDE [Concomitant]
     Indication: TYPE 2 DIABETES MELLITUS
  5. CANDESARTAN [Concomitant]
     Indication: HYPERTENSION
  6. HYDROCHLOROTHIAZIDE [Concomitant]
     Indication: HYPERTENSION

REACTIONS (11)
  - Abdominal pain [Unknown]
  - Nausea [Unknown]
  - Vomiting [Unknown]
  - Renal failure acute [Unknown]
  - Lethargy [Unknown]
  - Tongue dry [Unknown]
  - Skin turgor decreased [Unknown]
  - Hypotonia [Unknown]
  - Dehydration [Unknown]
  - Weight increased [Unknown]
  - Weight decreased [Unknown]
